FAERS Safety Report 7816148-5 (Version None)
Quarter: 2011Q4

REPORT INFORMATION
  Report Type: 
  Country: None (occurrence: None)
  Receive Date: 20111015
  Receipt Date: 20111003
  Transmission Date: 20120403
  Serious: Yes (Death)
  Sender: FDA-Public Use
  Company Number: EC-ROCHE-1001963

PATIENT
  Sex: Female
  Weight: 54.934 kg

DRUGS (1)
  1. BONIVA [Suspect]
     Indication: OSTEOPOROSIS
     Route: 048
     Dates: start: 20110202, end: 20110903

REACTIONS (4)
  - PYREXIA [None]
  - COUGH [None]
  - DYSPNOEA [None]
  - PNEUMONIA [None]
